FAERS Safety Report 9486588 (Version 1)
Quarter: 2013Q3

REPORT INFORMATION
  Report Type: Spontaneous
  Country: FR (occurrence: FR)
  Receive Date: 20130829
  Receipt Date: 20130829
  Transmission Date: 20140515
  Serious: Yes (Other)
  Sender: FDA-Public Use
  Company Number: PHHY2013FR092091

PATIENT
  Age: 65 Year
  Sex: Female
  Weight: 88 kg

DRUGS (15)
  1. CICLOSPORIN [Suspect]
     Indication: RENAL TRANSPLANT
     Dosage: 100 MG, PER DAY
     Route: 048
  2. CICLOSPORIN [Interacting]
     Dosage: 800 MG, PER DAY
     Route: 048
  3. CICLOSPORIN [Interacting]
     Dosage: 200 MG, PER DAY
     Route: 042
  4. RIFAMPICIN [Interacting]
     Indication: TUBERCULOSIS
     Dosage: 900 MG, DAY
  5. FLUINDIONE [Interacting]
     Indication: PULMONARY EMBOLISM
     Dosage: 20 MG, PER DAY
  6. FLUINDIONE [Interacting]
     Dosage: 15 MG, PER DAY
  7. FLUINDIONE [Interacting]
     Dosage: 25 MG, PER DAY
  8. PREDNISONE [Concomitant]
     Indication: IMMUNOSUPPRESSION
     Dosage: 10 MG, PER DAY
  9. MYCOPHENOLIC ACID [Concomitant]
     Indication: IMMUNOSUPPRESSION
     Dosage: 1000 MG, PER DAY
  10. FRESUBIN [Concomitant]
     Indication: ENTERAL NUTRITION
  11. BROAD SPECTRUM ANTIBIOTICS [Concomitant]
  12. ISONIAZID [Concomitant]
  13. ETHAMBUTOL [Concomitant]
     Indication: TUBERCULOSIS
  14. PYRAZINAMIDE [Concomitant]
     Indication: TUBERCULOSIS
  15. HEPARIN [Concomitant]
     Indication: PULMONARY EMBOLISM

REACTIONS (4)
  - Haemoptysis [Recovered/Resolved]
  - Drug interaction [Unknown]
  - Immunosuppressant drug level decreased [Recovered/Resolved]
  - Drug level below therapeutic [Recovered/Resolved]
